FAERS Safety Report 23523192 (Version 1)
Quarter: 2024Q1

REPORT INFORMATION
  Report Type: Spontaneous
  Country: US (occurrence: US)
  Receive Date: 20240214
  Receipt Date: 20240214
  Transmission Date: 20240410
  Serious: No
  Sender: FDA-Public Use
  Company Number: US-HORIZON THERAPEUTICS-HZN-2023-008991

PATIENT

DRUGS (2)
  1. TEPEZZA [Suspect]
     Active Substance: TEPROTUMUMAB-TRBW
     Indication: Endocrine ophthalmopathy
     Dosage: 1ST DOSE
     Route: 042
     Dates: start: 20200801
  2. TEPEZZA [Suspect]
     Active Substance: TEPROTUMUMAB-TRBW
     Dosage: UNK
     Route: 042
     Dates: end: 20210106

REACTIONS (6)
  - Bone density decreased [Unknown]
  - Weight decreased [Unknown]
  - Alopecia [Unknown]
  - Onychoclasis [Unknown]
  - Muscle spasms [Unknown]
  - Dry skin [Unknown]
